FAERS Safety Report 4791735-X (Version None)
Quarter: 2005Q4

REPORT INFORMATION
  Report Type: 
  Country: None (occurrence: None)
  Receive Date: 20051007
  Receipt Date: 20050629
  Transmission Date: 20060501
  Serious: Yes (Hospitalization)
  Sender: FDA-Public Use
  Company Number: PHBS2005JP09499

PATIENT
  Age: 60 Year
  Sex: Male
  Weight: 75 kg

DRUGS (4)
  1. VOLTAREN [Suspect]
     Indication: PYREXIA
     Dosage: 25 MG/DAY
     Route: 048
     Dates: start: 20050625
  2. PREDNISOLONE [Suspect]
     Dosage: 60 MG, QD
     Dates: start: 20050707, end: 20050708
  3. PREDNISOLONE [Suspect]
     Dosage: 40 MG, QD
     Dates: start: 20050708, end: 20050709
  4. PREDNISOLONE [Suspect]
     Dosage: 20 MG, QD
     Dates: start: 20050709, end: 20050711

REACTIONS (7)
  - C-REACTIVE PROTEIN INCREASED [None]
  - DISSEMINATED INTRAVASCULAR COAGULATION [None]
  - ERYTHEMA MULTIFORME [None]
  - PLATELET COUNT DECREASED [None]
  - RASH [None]
  - THROMBOCYTOPENIA [None]
  - WHITE BLOOD CELL COUNT INCREASED [None]
